FAERS Safety Report 18485425 (Version 1)
Quarter: 2020Q4

REPORT INFORMATION
  Report Type: Spontaneous
  Country: DE (occurrence: DE)
  Receive Date: 20201110
  Receipt Date: 20201110
  Transmission Date: 20210114
  Serious: Yes (Hospitalization)
  Sender: FDA-Public Use
  Company Number: DE-TEVA-2020-DE-1845906

PATIENT
  Age: 67 Year
  Sex: Male

DRUGS (8)
  1. PANTOPRAZOL [Concomitant]
     Active Substance: PANTOPRAZOLE SODIUM
     Dosage: 40 MILLIGRAM DAILY; 40 MG, 1-0-0-0, TABLETS
  2. FUROSEMID [Concomitant]
     Active Substance: FUROSEMIDE
     Dosage: 40 MILLIGRAM DAILY; 40 MG, 1-0-0-0, TABLETS
  3. PREDNISOLON [Suspect]
     Active Substance: PREDNISOLONE
     Dosage: .5 DOSAGE FORMS DAILY; 10 MG, 0.5-0-0-0, TABLETS
  4. SPIRONOLACTON [Concomitant]
     Active Substance: SPIRONOLACTONE
     Dosage: 50 MILLIGRAM DAILY; 50 MG, 1-0-0-0, TABLETS
  5. METAMIZOL [Concomitant]
     Active Substance: METAMIZOLE SODIUM
     Dosage: 500 MG, AS NEEDED, TABLETS
  6. GEMCITABINE. [Suspect]
     Active Substance: GEMCITABINE
     Route: 065
  7. CALCIUM/COLECALCIFEROL [Concomitant]
     Active Substance: CALCIUM\CHOLECALCIFEROL
     Dosage: 1 DOSAGE FORMS DAILY; 600/0.01 MG, 1-0-0-0, EFFERVESCENT TABLETS
  8. LIXIANA [Concomitant]
     Active Substance: EDOXABAN TOSYLATE
     Dosage: 60 MILLIGRAM DAILY; 60 MG, 1-0-0-0, TABLETS

REACTIONS (3)
  - Chills [Unknown]
  - Escherichia bacteraemia [Unknown]
  - Pyrexia [Unknown]
